FAERS Safety Report 7325741-8 (Version None)
Quarter: 2011Q1

REPORT INFORMATION
  Report Type: 
  Country: None (occurrence: None)
  Receive Date: 20110302
  Receipt Date: 20110228
  Transmission Date: 20110831
  Serious: Yes (Other)
  Sender: FDA-Public Use
  Company Number: US-PFIZER INC-2011044091

PATIENT
  Sex: Male

DRUGS (1)
  1. ZOLOFT [Suspect]
     Indication: MENTAL DISORDER
     Dosage: 50 MG, 1X/DAY

REACTIONS (2)
  - PARAESTHESIA [None]
  - TACHYPHRENIA [None]
